FAERS Safety Report 17680301 (Version 1)
Quarter: 2020Q2

REPORT INFORMATION
  Report Type: Spontaneous
  Country: US (occurrence: US)
  Receive Date: 20200417
  Receipt Date: 20200417
  Transmission Date: 20200714
  Serious: Yes (Life-Threatening)
  Sender: FDA-Public Use
  Company Number: None

PATIENT
  Age: 70 Year
  Sex: Male

DRUGS (1)
  1. PROTAMINE SULFATE (PROTAMINE SO4 10MG/ML INJ) [Suspect]
     Active Substance: PROTAMINE SULFATE
     Indication: HEPARIN NEUTRALISATION THERAPY
     Dates: start: 20190520, end: 20190520

REACTIONS (1)
  - Hypotension [None]

NARRATIVE: CASE EVENT DATE: 20190520
